FAERS Safety Report 10456717 (Version 3)
Quarter: 2016Q3

REPORT INFORMATION
  Report Type: Spontaneous
  Country: US (occurrence: US)
  Receive Date: 20140916
  Receipt Date: 20160817
  Transmission Date: 20161109
  Serious: No
  Sender: FDA-Public Use
  Company Number: US-PFIZER INC-2014252406

PATIENT
  Age: 65 Year
  Sex: Male

DRUGS (11)
  1. METFORMIN HCL [Concomitant]
     Active Substance: METFORMIN HYDROCHLORIDE
     Indication: DIABETES MELLITUS
     Dosage: 500 MG, 2X/DAY
  2. FISH OIL [Concomitant]
     Active Substance: FISH OIL
     Dosage: 1200 MG, 2X/DAY
     Route: 048
  3. SPIRONOLACTONE. [Concomitant]
     Active Substance: SPIRONOLACTONE
     Indication: ACCELERATED HYPERTENSION
     Dosage: 50 MG, DAILY
  4. METANX [Concomitant]
     Active Substance: LEVOMEFOLATE CALCIUM\METHYLCOBALAMIN\PYRIDOXAL PHOSPHATE ANHYDROUS
     Indication: DIABETES MELLITUS
     Dosage: (3-90.314-2-35 MG) 1 CAPSULE TWO TIMES DAILY
  5. NORCO [Concomitant]
     Active Substance: ACETAMINOPHEN\HYDROCODONE BITARTRATE
     Indication: LUMBAR SPINAL STENOSIS
     Dosage: 10-325 MG (TWO TIMES DAILY AS NEEDED)
  6. LABETALOL HCL [Concomitant]
     Active Substance: LABETALOL HYDROCHLORIDE
     Indication: ACCELERATED HYPERTENSION
     Dosage: 200 MG, 2X/DAY (EVERY TWELEVE HOURS)
  7. TRAMADOL HYDROCHLORIDE. [Concomitant]
     Active Substance: TRAMADOL HYDROCHLORIDE
     Indication: PAIN
     Dosage: 50 MG, AS NEEDED (TABLET Q 4 H PRN)
  8. FLONASE [Concomitant]
     Active Substance: FLUTICASONE PROPIONATE
     Indication: EUSTACHIAN TUBE DYSFUNCTION
     Dosage: 2 DF, DAILY (50MCG/ACT 2PUFF DAILY))
  9. LYRICA [Suspect]
     Active Substance: PREGABALIN
     Indication: DIABETES MELLITUS
     Dosage: 75 MG, 2X/DAY
     Route: 048
  10. LEVEMIR [Concomitant]
     Active Substance: INSULIN DETEMIR
     Indication: DIABETES MELLITUS
     Dosage: 30 IU, (AT BEDTIME)
  11. CLONIDINE HCL [Concomitant]
     Active Substance: CLONIDINE HYDROCHLORIDE
     Indication: ACCELERATED HYPERTENSION
     Dosage: 0.2 MG, 2X/DAY

REACTIONS (3)
  - Product use issue [Unknown]
  - Pain [Unknown]
  - Disease recurrence [Unknown]
